FAERS Safety Report 4827702-7 (Version None)
Quarter: 2005Q4

REPORT INFORMATION
  Report Type: 
  Country: None (occurrence: None)
  Receive Date: 20051114
  Receipt Date: 20050930
  Transmission Date: 20060501
  Serious: Yes (Death, Hospitalization, Other)
  Sender: FDA-Public Use
  Company Number: US-MERCK-0510USA03939

PATIENT
  Age: 81 Year
  Sex: Male
  Weight: 64 kg

DRUGS (10)
  1. VIOXX [Suspect]
     Indication: ARTHRITIS
     Route: 048
  2. VIOXX [Suspect]
     Indication: GOUT
     Route: 048
  3. CARAFATE [Concomitant]
     Route: 065
  4. LASIX [Concomitant]
     Route: 065
  5. LANOXIN [Concomitant]
     Route: 065
  6. LOTENSIN [Concomitant]
     Route: 065
  7. PEPCID [Concomitant]
     Route: 065
  8. PROTONIX [Concomitant]
     Route: 065
  9. RISPERDAL [Concomitant]
     Route: 065
  10. TEQUIN [Concomitant]
     Route: 065

REACTIONS (6)
  - CARDIOVASCULAR DISORDER [None]
  - DEATH [None]
  - DISORIENTATION [None]
  - EPISTAXIS [None]
  - ISCHAEMIC STROKE [None]
  - MYOCARDIAL INFARCTION [None]
